FAERS Safety Report 12524833 (Version 3)
Quarter: 2016Q3

REPORT INFORMATION
  Report Type: Report from Study
  Country: US (occurrence: US)
  Receive Date: 20160704
  Receipt Date: 20160720
  Transmission Date: 20161109
  Serious: Yes (Death, Hospitalization)
  Sender: FDA-Public Use
  Company Number: US-JNJFOC-20160700112

PATIENT
  Age: 79 Year
  Sex: Female
  Weight: 107 kg

DRUGS (19)
  1. IMBRUVICA [Suspect]
     Active Substance: IBRUTINIB
     Indication: B-CELL LYMPHOMA
     Route: 048
     Dates: start: 20150305, end: 201606
  2. ASPIRIN. [Concomitant]
     Active Substance: ASPIRIN
     Route: 048
  3. CALCIUM [Concomitant]
     Active Substance: CALCIUM
  4. AMLODIPINE [Concomitant]
     Active Substance: AMLODIPINE BESYLATE
  5. METOPROLOL. [Concomitant]
     Active Substance: METOPROLOL
  6. ISOSORBIDE MONONITRATE. [Concomitant]
     Active Substance: ISOSORBIDE MONONITRATE
  7. GABAPENTIN. [Concomitant]
     Active Substance: GABAPENTIN
  8. IMBRUVICA [Suspect]
     Active Substance: IBRUTINIB
     Indication: CHRONIC LYMPHOCYTIC LEUKAEMIA
     Route: 048
     Dates: start: 20150305, end: 201606
  9. LANTUS [Concomitant]
     Active Substance: INSULIN GLARGINE
     Indication: DIABETES MELLITUS
  10. TYLENOL [Concomitant]
     Active Substance: ACETAMINOPHEN
  11. LEVEMIR [Concomitant]
     Active Substance: INSULIN DETEMIR
  12. LIDOCAINE. [Concomitant]
     Active Substance: LIDOCAINE
  13. NITROGLYCERIN. [Concomitant]
     Active Substance: NITROGLYCERIN
  14. FOLIC ACID. [Concomitant]
     Active Substance: FOLIC ACID
  15. BENZYLPENICILLIN [Concomitant]
     Active Substance: PENICILLIN G
  16. VANCOMYCIN [Concomitant]
     Active Substance: VANCOMYCIN
  17. LOVENOX [Concomitant]
     Active Substance: ENOXAPARIN SODIUM
  18. PREDNISONE. [Concomitant]
     Active Substance: PREDNISONE
  19. MEROPENEM. [Concomitant]
     Active Substance: MEROPENEM

REACTIONS (7)
  - Blood calcium increased [Not Recovered/Not Resolved]
  - Off label use [Unknown]
  - Incorrect dose administered [Not Recovered/Not Resolved]
  - Death [Fatal]
  - Dementia [Not Recovered/Not Resolved]
  - Product use issue [Unknown]
  - Malaise [Unknown]

NARRATIVE: CASE EVENT DATE: 2015
